FAERS Safety Report 8300546 (Version 2)
Quarter: 2014Q2

REPORT INFORMATION
  Report Type: Spontaneous
  Country: US (occurrence: US)
  Receive Date: 20111219
  Receipt Date: 20140426
  Transmission Date: 20141212
  Serious: No
  Sender: FDA-Public Use
  Company Number: US-ASTRAZENECA-2011SE33361

PATIENT
  Age: 55 Year
  Sex: Female
  Weight: 81.6 kg

DRUGS (10)
  1. NEXIUM EERD (DELAYED RELEASE) [Suspect]
     Indication: GASTROOESOPHAGEAL REFLUX DISEASE
     Route: 048
     Dates: start: 2013
  2. NEXIUM EERD (DELAYED RELEASE) [Suspect]
     Indication: GASTROOESOPHAGEAL REFLUX DISEASE
     Route: 048
     Dates: start: 201403
  3. TOPROL-XL [Suspect]
     Indication: HYPERTENSION
     Dosage: ONE AND ONE HALF TAB DAILY
     Route: 048
  4. TOPROL-XL [Suspect]
     Indication: HYPERTENSION
     Route: 048
     Dates: start: 201402
  5. CRESTOR [Suspect]
     Indication: BLOOD CHOLESTEROL ABNORMAL
     Route: 048
     Dates: start: 2012
  6. MORPHINE [Suspect]
     Route: 065
  7. HYZAR [Concomitant]
     Indication: HYPERTENSION
     Route: 048
     Dates: start: 2011
  8. LASIX [Concomitant]
     Indication: OEDEMA
     Route: 048
     Dates: start: 2011
  9. TOPAMAX [Concomitant]
     Indication: CONVULSION
     Dosage: TWO 100 MG TABLETS EACH MORNING AND THREE 100 MG TABLETS EACH
     Route: 048
     Dates: start: 2013
  10. CLONAZEPAM [Concomitant]
     Indication: CONVULSION
     Route: 048
     Dates: start: 2013

REACTIONS (8)
  - Blood cholesterol increased [Unknown]
  - Dyspepsia [Recovered/Resolved]
  - Regurgitation [Recovered/Resolved]
  - Back pain [Unknown]
  - Nausea [Recovered/Resolved]
  - Drug hypersensitivity [Unknown]
  - Off label use [Unknown]
  - Intentional product misuse [Unknown]
